FAERS Safety Report 4860346-X (Version None)
Quarter: 2005Q4

REPORT INFORMATION
  Report Type: 
  Country: None (occurrence: None)
  Receive Date: 20051219
  Receipt Date: 20051209
  Transmission Date: 20060501
  Serious: Yes (Other)
  Sender: FDA-Public Use
  Company Number: CA-BRISTOL-MYERS SQUIBB COMPANY-13218573

PATIENT
  Age: 57 Year
  Sex: Male

DRUGS (11)
  1. TEQUIN [Suspect]
     Route: 048
  2. DIAMICRON [Suspect]
     Route: 048
  3. ACETAMINOPHEN [Concomitant]
  4. ADALAT [Concomitant]
     Route: 048
  5. BETALOC [Concomitant]
  6. CATAPRES [Concomitant]
  7. ENTROPHEN [Concomitant]
     Route: 048
  8. K-DUR 10 [Concomitant]
  9. LASIX [Concomitant]
     Route: 048
  10. PANTOPRAZOLE SODIUM [Concomitant]
     Route: 048
  11. RIVOTRIL [Concomitant]

REACTIONS (2)
  - COMA [None]
  - HYPOGLYCAEMIA [None]
